FAERS Safety Report 5321105-7 (Version None)
Quarter: 2007Q2

REPORT INFORMATION
  Report Type: 
  Country: None (occurrence: None)
  Receive Date: 20070510
  Receipt Date: 20070501
  Transmission Date: 20071010
  Serious: Yes (Hospitalization)
  Sender: FDA-Public Use
  Company Number: US-BRISTOL-MYERS SQUIBB COMPANY-13721600

PATIENT
  Age: 79 Year
  Sex: Male
  Weight: 59 kg

DRUGS (21)
  1. CETUXIMAB [Suspect]
     Indication: COLORECTAL CANCER
     Route: 042
     Dates: start: 20070306, end: 20070306
  2. BEVACIZUMAB [Suspect]
     Indication: COLORECTAL CANCER
     Route: 042
     Dates: start: 20070306, end: 20070306
  3. FLUOROURACIL [Suspect]
     Indication: COLORECTAL CANCER
     Route: 042
     Dates: start: 20070306, end: 20070306
  4. LEUCOVORIN CALCIUM [Suspect]
     Indication: COLORECTAL CANCER
     Route: 042
     Dates: start: 20070306, end: 20070306
  5. FOSAMAX [Concomitant]
     Indication: OSTEOPOROSIS
     Route: 048
  6. ZOCOR [Concomitant]
     Indication: BLOOD CHOLESTEROL
     Route: 048
  7. ENALAPRIL [Concomitant]
     Indication: BLOOD PRESSURE
     Route: 048
  8. AMARYL [Concomitant]
     Indication: DIABETES MELLITUS
     Route: 048
     Dates: start: 20070321
  9. TERAZOSIN HCL [Concomitant]
     Indication: PROSTATIC DISORDER
     Route: 048
  10. FUROSEMIDE [Concomitant]
     Indication: POLYURIA
     Route: 048
     Dates: start: 20070321
  11. TOPROL-XL [Concomitant]
     Indication: BLOOD PRESSURE
     Route: 048
  12. METFORMIN HCL [Concomitant]
     Indication: DIABETES MELLITUS
     Route: 048
  13. ASPIRIN [Concomitant]
     Indication: PROPHYLAXIS
     Route: 048
  14. K-DUR 10 [Concomitant]
     Indication: ELECTROLYTE SUBSTITUTION THERAPY
     Route: 048
     Dates: start: 20070321
  15. CARDURA [Concomitant]
     Indication: BLOOD PRESSURE
     Route: 048
     Dates: start: 20070321
  16. REQUIP [Concomitant]
     Indication: RESTLESS LEGS SYNDROME
     Route: 048
  17. MAGNESIUM OXIDE [Concomitant]
     Indication: MINERAL SUPPLEMENTATION
     Route: 048
     Dates: start: 20070321
  18. OS-CAL [Concomitant]
     Indication: MINERAL SUPPLEMENTATION
     Route: 048
     Dates: start: 20070321
  19. CENTRUM SILVER [Concomitant]
     Indication: VITAMIN SUPPLEMENTATION
     Route: 048
  20. CALTRATE [Concomitant]
     Indication: MINERAL SUPPLEMENTATION
     Route: 048
  21. HUMULIN R [Concomitant]
     Indication: DIABETES MELLITUS
     Route: 058

REACTIONS (2)
  - CLOSTRIDIUM DIFFICILE COLITIS [None]
  - PLEURAL EFFUSION [None]
